FAERS Safety Report 9389262 (Version 1)
Quarter: 2013Q3

REPORT INFORMATION
  Report Type: Spontaneous
  Country: US (occurrence: US)
  Receive Date: 20130708
  Receipt Date: 20130708
  Transmission Date: 20140515
  Serious: No
  Sender: FDA-Public Use
  Company Number: US-AMGEN-USASP2013045396

PATIENT
  Age: 55 Year
  Sex: Female

DRUGS (2)
  1. ENBREL [Suspect]
     Indication: RHEUMATOID ARTHRITIS
     Dosage: 25 MG, QWK
     Route: 065
     Dates: start: 20010101
  2. PREDNISONE [Concomitant]
     Dosage: 5 MG, QD  FOR 17 YRS

REACTIONS (2)
  - Laceration [Not Recovered/Not Resolved]
  - Skin atrophy [Not Recovered/Not Resolved]
